FAERS Safety Report 21113551 (Version 1)
Quarter: 2022Q3

REPORT INFORMATION
  Report Type: Spontaneous
  Country: US (occurrence: None)
  Receive Date: 20220721
  Receipt Date: 20220721
  Transmission Date: 20221026
  Serious: Yes (Disabling, Other)
  Sender: FDA-Public Use
  Company Number: None

PATIENT
  Age: 51 Year
  Sex: Female
  Weight: 58.5 kg

DRUGS (1)
  1. CIPROFLOXACIN HYDROCHLORIDE [Suspect]
     Active Substance: CIPROFLOXACIN HYDROCHLORIDE
     Indication: Urinary tract infection
     Dosage: OTHER QUANTITY : 1 TABLET(S);?FREQUENCY : EVERY 12 HOURS;?
     Route: 048
     Dates: start: 20200219, end: 20200221

REACTIONS (8)
  - Vitreous floaters [None]
  - Retinal tear [None]
  - Visual impairment [None]
  - Scar [None]
  - Cataract [None]
  - Paraesthesia [None]
  - Pain in extremity [None]
  - Pain in extremity [None]

NARRATIVE: CASE EVENT DATE: 20200222
